FAERS Safety Report 16684239 (Version 1)
Quarter: 2019Q3

REPORT INFORMATION
  Report Type: Spontaneous
  Country: TW (occurrence: TW)
  Receive Date: 20190808
  Receipt Date: 20190808
  Transmission Date: 20191004
  Serious: Yes (Other)
  Sender: FDA-Public Use
  Company Number: PHHY2014TW185356

PATIENT
  Sex: Male

DRUGS (5)
  1. ALLOPURINOL. [Suspect]
     Active Substance: ALLOPURINOL
     Indication: PRODUCT USED FOR UNKNOWN INDICATION
     Dosage: 100 MG, BID
     Route: 065
  2. HYDROXYUREA. [Concomitant]
     Active Substance: HYDROXYUREA
     Dosage: 500 MG, UNK (250 TO 500 MG)
     Route: 065
     Dates: start: 20070222, end: 20130706
  3. ANAGRELIDE. [Concomitant]
     Active Substance: ANAGRELIDE HYDROCHLORIDE
     Indication: PRODUCT USED FOR UNKNOWN INDICATION
     Dosage: 2 MG, UNK (1 TO 2 MG)
     Route: 065
     Dates: end: 20140125
  4. HYDROXYUREA. [Concomitant]
     Active Substance: HYDROXYUREA
     Indication: PRODUCT USED FOR UNKNOWN INDICATION
     Dosage: 2000 MG, UNK (1000 TO 2000 MG)
     Route: 065
     Dates: start: 20001002, end: 20070221
  5. ANAGRELIDE. [Concomitant]
     Active Substance: ANAGRELIDE HYDROCHLORIDE
     Dosage: 1 MG, UNK
     Route: 065
     Dates: start: 20140125

REACTIONS (11)
  - Splenomegaly [Unknown]
  - Decreased appetite [Unknown]
  - Bone marrow reticulin fibrosis [Unknown]
  - Gout [Unknown]
  - Hypertension [Unknown]
  - Cachexia [Unknown]
  - Oral submucosal fibrosis [Unknown]
  - Anaemia [Unknown]
  - Myelofibrosis [Unknown]
  - Disease progression [Unknown]
  - Haemoglobin decreased [Unknown]

NARRATIVE: CASE EVENT DATE: 2000
